FAERS Safety Report 4872132-5 (Version None)
Quarter: 2005Q4

REPORT INFORMATION
  Report Type: 
  Country: None (occurrence: None)
  Receive Date: 20051230
  Receipt Date: 20051216
  Transmission Date: 20060501
  Serious: Yes (Other)
  Sender: FDA-Public Use
  Company Number: 2005143404

PATIENT
  Age: 70 Year
  Sex: Female

DRUGS (11)
  1. MACUGEN [Suspect]
     Indication: MACULAR DEGENERATION
     Dosage: 0.3 MG (0.3 MG, ONCE INTERVAL: ONE TIME ONLY), INTRAVITREOUS
     Route: 031
     Dates: start: 20051012, end: 20051012
  2. HYDROCHLOROTHIAZIDE [Concomitant]
  3. PLAVIX [Concomitant]
  4. ACETYLSALICYLIC ACID SRT [Concomitant]
  5. OCUVITE (ASCORBIC ACID, RETINOL, TOCOPHEROL) [Concomitant]
  6. PLETAL (CICLOSTAZOL) [Concomitant]
  7. PRAVACHOL [Concomitant]
  8. NOVASC (AMLODIPINE) [Concomitant]
  9. TYLENOL ARTHRITIS (PARACETAMOL) [Concomitant]
  10. MOXIFLOXACIN HCL [Concomitant]
  11. RANITIDINE HCL [Concomitant]

REACTIONS (2)
  - THROAT TIGHTNESS [None]
  - URTICARIA [None]
